FAERS Safety Report 21752537 (Version 2)
Quarter: 2023Q1

REPORT INFORMATION
  Report Type: Report from Study
  Country: US (occurrence: US)
  Receive Date: 20221220
  Receipt Date: 20230122
  Transmission Date: 20230418
  Serious: Yes (Hospitalization)
  Sender: FDA-Public Use
  Company Number: US-ABBVIE-4242996

PATIENT
  Sex: Female

DRUGS (1)
  1. HUMIRA [Suspect]
     Active Substance: ADALIMUMAB
     Indication: Hidradenitis
     Dosage: CITRATE FREE
     Route: 058
     Dates: start: 20220929

REACTIONS (6)
  - Sepsis [Not Recovered/Not Resolved]
  - Rhabdomyolysis [Unknown]
  - Liver function test increased [Unknown]
  - Arthralgia [Unknown]
  - Staphylococcal infection [Unknown]
  - Furuncle [Unknown]
